FAERS Safety Report 7204967-8 (Version None)
Quarter: 2010Q4

REPORT INFORMATION
  Report Type: 
  Country: None (occurrence: None)
  Receive Date: 20101230
  Receipt Date: 20101221
  Transmission Date: 20110411
  Serious: Yes (Other)
  Sender: FDA-Public Use
  Company Number: US-PFIZER INC-2010177068

PATIENT
  Age: 62 Year
  Sex: Female

DRUGS (3)
  1. LIPITOR [Suspect]
     Indication: HYPERLIPIDAEMIA
     Dosage: 10 MG, UNK
  2. ESTROGENS CONJUGATED [Concomitant]
     Dosage: 4 MG, UNK
  3. ESTROGENS CONJUGATED [Concomitant]
     Dosage: 2 MG, UNK

REACTIONS (1)
  - HYPOTHYROIDISM [None]
